FAERS Safety Report 13051150 (Version 2)
Quarter: 2016Q4

REPORT INFORMATION
  Report Type: Spontaneous
  Country: US (occurrence: US)
  Receive Date: 20161221
  Receipt Date: 20161221
  Transmission Date: 20170207
  Serious: No
  Sender: FDA-Public Use
  Company Number: US-ENDO PHARMACEUTICALS INC.-2016-006427

PATIENT
  Age: 46 Year
  Sex: Male
  Weight: 111.23 kg

DRUGS (6)
  1. HYDROCORTISONE TABLETS [Concomitant]
     Active Substance: HYDROCORTISONE
     Indication: HYPOTHALAMO-PITUITARY DISORDER
  2. TESTOSTERONE ENANTHATE. [Concomitant]
     Active Substance: TESTOSTERONE ENANTHATE
     Indication: BLOOD TESTOSTERONE DECREASED
  3. DESSICATED THYROID [Concomitant]
     Indication: THYROID DISORDER
  4. OPANA ER [Suspect]
     Active Substance: OXYMORPHONE HYDROCHLORIDE
     Indication: SPINAL PAIN
     Route: 048
     Dates: start: 2011
  5. OXYCODONE HCL 15MG [Concomitant]
     Active Substance: OXYCODONE HYDROCHLORIDE
     Indication: SPINAL PAIN
  6. HIGH BLOOD PRESSURE MEDICATION [Concomitant]
     Active Substance: UNSPECIFIED INGREDIENT
     Indication: HYPERTENSION

REACTIONS (2)
  - Unevaluable event [Unknown]
  - Drug screen negative [Unknown]

NARRATIVE: CASE EVENT DATE: 201604
